FAERS Safety Report 6608804 (Version 23)
Quarter: 2014Q1

REPORT INFORMATION
  Report Type: Spontaneous
  Country: US (occurrence: US)
  Receive Date: 20080407
  Receipt Date: 20140314
  Transmission Date: 20141002
  Serious: Yes (Death, Hospitalization, Other)
  Sender: FDA-Public Use
  Company Number: PHEH2008US03268

PATIENT
  Age: 56 Year
  Sex: Male

DRUGS (33)
  1. AREDIA [Suspect]
     Indication: METASTASES TO BONE
     Dosage: 90 MG, QMO
     Dates: start: 2005
  2. ZOMETA [Suspect]
  3. PROSCAR [Concomitant]
  4. CASODEX [Concomitant]
  5. VERSED [Concomitant]
  6. FENTANYL [Concomitant]
  7. INTEGRILIN [Concomitant]
  8. ECOTRIN [Concomitant]
  9. CELEBREX [Concomitant]
  10. LOPRESSOR [Concomitant]
  11. LISINOPRIL [Concomitant]
  12. ENDOCET [Concomitant]
  13. ZETIA [Concomitant]
  14. SIMVASTATIN [Concomitant]
  15. PLAVIX [Concomitant]
  16. LIPITOR                                 /NET/ [Concomitant]
  17. ASPIRIN [Concomitant]
     Dosage: 325 MG, DAILY
  18. DILAUDID [Concomitant]
     Dosage: 8 MG, Q4H AS NEEDED
  19. FUROSEMIDE [Concomitant]
     Dosage: 20 MG, DAILY
  20. LORAZEPAM [Concomitant]
     Dosage: 05 MG, Q6H AS NEEDED
  21. LOVAZA [Concomitant]
  22. METOPROLOL [Concomitant]
     Dosage: 100 MG, BID
  23. MULTIVITAMIN [Concomitant]
  24. OMEPRAZOLE [Concomitant]
     Dosage: 20 MG, DAILY
  25. OXYCONTIN [Concomitant]
     Dosage: 60 MG, BID
  26. RANEXA [Concomitant]
     Dosage: 1000 MG, BID
  27. SYMBICORT [Concomitant]
  28. ISOSORBIDE MONONITRATE [Concomitant]
     Dosage: 90 MG, BID
  29. PENICILLIN V POTASSIUM [Concomitant]
     Dosage: 400 MG, QID
  30. MIDAZOLAM [Concomitant]
     Dosage: 2 MG, UNK
     Route: 042
  31. NITROGLYCERIN [Concomitant]
  32. VERAPAMIL [Concomitant]
     Dosage: 2 MG, UNK
  33. HEPARIN [Concomitant]

REACTIONS (79)
  - Neoplasm progression [Fatal]
  - Malignant neoplasm progression [Fatal]
  - Osteonecrosis of jaw [Unknown]
  - Pain [Unknown]
  - Infection [Unknown]
  - Deformity [Unknown]
  - Emotional distress [Unknown]
  - Anxiety [Unknown]
  - Swelling [Unknown]
  - Abscess soft tissue [Unknown]
  - Inflammation [Unknown]
  - Oral discharge [Unknown]
  - Oral cavity fistula [Unknown]
  - Pulmonary congestion [Unknown]
  - Anaemia [Unknown]
  - Prostatic specific antigen increased [Unknown]
  - Submandibular mass [Unknown]
  - Arteriosclerosis [Unknown]
  - Coronary artery stenosis [Unknown]
  - Hyperhidrosis [Unknown]
  - Sinus tachycardia [Unknown]
  - Bundle branch block right [Unknown]
  - Angina unstable [Unknown]
  - Urinary tract infection [Unknown]
  - Urethral pain [Unknown]
  - Hepatic steatosis [Unknown]
  - Intervertebral disc degeneration [Unknown]
  - Venous insufficiency [Unknown]
  - Local swelling [Unknown]
  - Hyperparathyroidism [Unknown]
  - Failure to thrive [Unknown]
  - Asthenia [Unknown]
  - Spinal cord compression [Unknown]
  - Renal failure acute [Unknown]
  - Hydronephrosis [Unknown]
  - Spinal osteoarthritis [Unknown]
  - Bronchospasm [Unknown]
  - Electrocardiogram ST-T change [Unknown]
  - Pulmonary mass [Unknown]
  - Gynaecomastia [Unknown]
  - Diverticulum [Unknown]
  - Lymphocyte count decreased [Unknown]
  - Neutrophil count increased [Unknown]
  - Blood glucose increased [Unknown]
  - Dysphagia [Unknown]
  - Nausea [Unknown]
  - Tremor [Unknown]
  - Constipation [Unknown]
  - Back pain [Unknown]
  - Osteomyelitis [Unknown]
  - Exostosis [Unknown]
  - Bone loss [Unknown]
  - Bone density decreased [Unknown]
  - Subcutaneous abscess [Unknown]
  - Alpha haemolytic streptococcal infection [Unknown]
  - Depression [Unknown]
  - Life expectancy shortened [Unknown]
  - Cardiomegaly [Unknown]
  - Retroperitoneal lymphadenopathy [Unknown]
  - Myocardial ischaemia [Unknown]
  - Rectal haemorrhage [Unknown]
  - Adenoma benign [Unknown]
  - Asthma [Unknown]
  - Osteoarthritis [Unknown]
  - Insomnia [Unknown]
  - Bone marrow oedema [Unknown]
  - Wound [Unknown]
  - Dyspnoea [Unknown]
  - Anal fissure [Unknown]
  - Pain in jaw [Unknown]
  - Lethargy [Unknown]
  - Diarrhoea [Recovering/Resolving]
  - Fatigue [Unknown]
  - Toothache [Unknown]
  - Nasal septum deviation [Unknown]
  - Facial bones fracture [Unknown]
  - Subcutaneous emphysema [Unknown]
  - Osteosclerosis [Unknown]
  - Bone lesion [Unknown]
